FAERS Safety Report 13745710 (Version 20)
Quarter: 2018Q3

REPORT INFORMATION
  Report Type: Report from Study
  Country: CA (occurrence: CA)
  Receive Date: 20170712
  Receipt Date: 20180905
  Transmission Date: 20181010
  Serious: Yes (Other)
  Sender: FDA-Public Use
  Company Number: CA-SA-2016SA226223

PATIENT
  Age: 35 Year
  Sex: Male
  Weight: 68 kg

DRUGS (9)
  1. ALEMTUZUMAB [Suspect]
     Active Substance: ALEMTUZUMAB
     Dosage: 12 MG,QD
     Route: 041
     Dates: start: 20161207, end: 20161208
  2. REACTINE [CETIRIZINE HYDROCHLORIDE] [Concomitant]
     Active Substance: CETIRIZINE HYDROCHLORIDE
     Indication: PREMEDICATION
     Dosage: 10 MG,UNK
     Route: 048
     Dates: start: 20161204, end: 20161208
  3. ACETAMINOPHEN. [Concomitant]
     Active Substance: ACETAMINOPHEN
     Indication: PREMEDICATION
     Dosage: 1 G,PRN
     Route: 048
     Dates: start: 20161205
  4. ZOPICLONE [Concomitant]
     Active Substance: ZOPICLONE
     Dosage: DOSE: 7.5 AT BEDTIME AS NEEDED
     Route: 048
  5. ZANTAC [Concomitant]
     Active Substance: RANITIDINE HYDROCHLORIDE
     Indication: PREMEDICATION
     Dosage: 150 MG,UNK
     Route: 048
     Dates: start: 20161205, end: 20161208
  6. ACICLOVIR [Concomitant]
     Active Substance: ACYCLOVIR
     Indication: PREMEDICATION
     Dosage: 200 MG,BID
     Route: 048
     Dates: start: 20161205, end: 20170107
  7. ERGOCALCIFEROL. [Concomitant]
     Active Substance: ERGOCALCIFEROL
     Dosage: 10000 IU,QW
     Dates: start: 2013
  8. METHYLPREDNISOLONE. [Concomitant]
     Active Substance: METHYLPREDNISOLONE
     Indication: PREMEDICATION
     Dosage: 1 G,UNK
     Route: 042
     Dates: start: 20161205, end: 20161208
  9. ALEMTUZUMAB [Suspect]
     Active Substance: ALEMTUZUMAB
     Indication: RELAPSING-REMITTING MULTIPLE SCLEROSIS
     Dosage: 12 MG,QD
     Route: 041
     Dates: start: 20161205, end: 20161205

REACTIONS (57)
  - Fatigue [Unknown]
  - Head discomfort [Recovered/Resolved]
  - Neutrophil count increased [Recovered/Resolved]
  - Myelocyte percentage increased [Not Recovered/Not Resolved]
  - Lymphocyte count decreased [Not Recovered/Not Resolved]
  - Malaise [Recovered/Resolved]
  - Tri-iodothyronine free increased [Not Recovered/Not Resolved]
  - Eosinophil percentage increased [Recovered/Resolved]
  - Lymphocyte count increased [Recovered/Resolved]
  - Haemoglobin decreased [Recovered/Resolved]
  - White blood cell count decreased [Recovered/Resolved]
  - Hypoaesthesia [Recovered/Resolved]
  - Nasopharyngitis [Recovered/Resolved]
  - Thyroxine free increased [Recovered/Resolved]
  - Promyelocyte count increased [Not Recovered/Not Resolved]
  - Basophil percentage increased [Recovered/Resolved]
  - Painful respiration [Recovered/Resolved]
  - Band neutrophil percentage increased [Not Recovered/Not Resolved]
  - Metamyelocyte count increased [Not Recovered/Not Resolved]
  - Myelocyte count increased [Not Recovered/Not Resolved]
  - Blood urine present [Recovered/Resolved]
  - Haematocrit decreased [Recovered/Resolved]
  - Hyperthyroidism [Unknown]
  - Leukocytosis [Unknown]
  - Myelocytosis [Unknown]
  - Specific gravity urine increased [Recovered/Resolved]
  - Bacterial test positive [Not Recovered/Not Resolved]
  - White blood cell count increased [Recovered/Resolved]
  - Influenza [Recovered/Resolved]
  - Glucose urine present [Not Recovered/Not Resolved]
  - Thyroiditis [Recovering/Resolving]
  - Musculoskeletal pain [Unknown]
  - Insomnia [Not Recovered/Not Resolved]
  - Gait disturbance [Recovered/Resolved]
  - Blood thyroid stimulating hormone decreased [Not Recovered/Not Resolved]
  - Urine leukocyte esterase positive [Recovered/Resolved]
  - Urine analysis abnormal [Not Recovered/Not Resolved]
  - Metamyelocyte percentage increased [Not Recovered/Not Resolved]
  - Lymphocyte percentage decreased [Not Recovered/Not Resolved]
  - Fatigue [Recovered/Resolved]
  - Muscular weakness [Recovered/Resolved]
  - Nasal congestion [Recovering/Resolving]
  - Chronic myeloid leukaemia [Recovering/Resolving]
  - Weight decreased [Unknown]
  - Red blood cell rouleaux formation present [Unknown]
  - Red cell distribution width increased [Recovered/Resolved]
  - Basophil count increased [Recovered/Resolved]
  - Headache [Recovered/Resolved]
  - Increased appetite [Unknown]
  - Insomnia [Unknown]
  - Expanded disability status scale score increased [Not Recovered/Not Resolved]
  - Urine bilirubin decreased [Recovered/Resolved]
  - Neutrophil percentage increased [Recovered/Resolved]
  - Band neutrophil count increased [Not Recovered/Not Resolved]
  - Urinary casts [Not Recovered/Not Resolved]
  - Crystal urine present [Not Recovered/Not Resolved]
  - White blood cell count increased [Recovered/Resolved]

NARRATIVE: CASE EVENT DATE: 20161205
